FAERS Safety Report 12998933 (Version 2)
Quarter: 2017Q1

REPORT INFORMATION
  Report Type: Spontaneous
  Country: IT (occurrence: IT)
  Receive Date: 20161205
  Receipt Date: 20170130
  Transmission Date: 20170428
  Serious: Yes (Hospitalization, Other)
  Sender: FDA-Public Use
  Company Number: IT-JNJFOC-20161200731

PATIENT

DRUGS (3)
  1. RISPERIDONE. [Suspect]
     Active Substance: RISPERIDONE
     Indication: MENTAL DISORDER
     Route: 065
  2. RISPERIDONE. [Suspect]
     Active Substance: RISPERIDONE
     Indication: DISTURBANCE IN SOCIAL BEHAVIOUR
     Route: 065
  3. VALPROIC ACID. [Concomitant]
     Active Substance: VALPROIC ACID
     Indication: DRUG THERAPY
     Route: 065

REACTIONS (17)
  - Electrocardiogram QT prolonged [Unknown]
  - Headache [Unknown]
  - Agitation [Unknown]
  - Hepatic enzyme increased [Unknown]
  - Hyperprolactinaemia [Unknown]
  - Somnolence [Unknown]
  - Sinus tachycardia [Unknown]
  - Hyperphagia [Unknown]
  - Hospitalisation [Unknown]
  - Tremor [Unknown]
  - Drug ineffective [Unknown]
  - Abdominal pain [Unknown]
  - Irritability [Unknown]
  - Blood alkaline phosphatase increased [Unknown]
  - Sedation [Recovered/Resolved]
  - Weight increased [Unknown]
  - Blood creatine phosphokinase abnormal [Unknown]
